FAERS Safety Report 6981758-4 (Version None)
Quarter: 2010Q3

REPORT INFORMATION
  Report Type: 
  Country: None (occurrence: None)
  Receive Date: 20100914
  Receipt Date: 20091021
  Transmission Date: 20110219
  Serious: No
  Sender: FDA-Public Use
  Company Number: US-PFIZER INC-2009265418

PATIENT
  Sex: Male
  Weight: 74.8 kg

DRUGS (3)
  1. LYRICA [Suspect]
     Indication: HERPES ZOSTER
     Dosage: 75 MG, 2X/DAY
     Route: 048
     Dates: start: 20090817, end: 20090829
  2. HYDROCODONE [Concomitant]
     Indication: HERPES ZOSTER
     Dosage: 7.5/750MG, UNK
  3. PHENOBARBITAL [Concomitant]
     Indication: LOSS OF CONSCIOUSNESS
     Dosage: UNK

REACTIONS (7)
  - INSOMNIA [None]
  - LIP BLISTER [None]
  - MUSCULOSKELETAL STIFFNESS [None]
  - NECK PAIN [None]
  - OROPHARYNGEAL BLISTERING [None]
  - PAIN [None]
  - VISION BLURRED [None]
